FAERS Safety Report 19595158 (Version 2)
Quarter: 2021Q3

REPORT INFORMATION
  Report Type: Spontaneous
  Country: US (occurrence: US)
  Receive Date: 20210722
  Receipt Date: 20210820
  Transmission Date: 20211014
  Serious: No
  Sender: FDA-Public Use
  Company Number: US-PFIZER INC-2020181687

PATIENT
  Age: 57 Year
  Sex: Female

DRUGS (1)
  1. PREGABALIN. [Suspect]
     Active Substance: PREGABALIN
     Dosage: 500 MG, DAILY (100 MG IN THE MORNING, 200 MG AT NOON AND 200 MG AT NIGHT)

REACTIONS (1)
  - Drug ineffective [Unknown]
